FAERS Safety Report 5606581-4 (Version None)
Quarter: 2008Q1

REPORT INFORMATION
  Report Type: 
  Country: None (occurrence: None)
  Receive Date: 20080125
  Receipt Date: 20080102
  Transmission Date: 20080703
  Serious: Yes (Hospitalization)
  Sender: FDA-Public Use
  Company Number: KADN20080004

PATIENT
  Sex: Male

DRUGS (1)
  1. KADIAN [Suspect]

REACTIONS (2)
  - THROAT TIGHTNESS [None]
  - URTICARIA [None]
